FAERS Safety Report 15281313 (Version 1)
Quarter: 2018Q3

REPORT INFORMATION
  Report Type: Spontaneous
  Country: US (occurrence: US)
  Receive Date: 20180815
  Receipt Date: 20180815
  Transmission Date: 20181010
  Serious: No
  Sender: FDA-Public Use
  Company Number: US-PERRIGO-18US006258

PATIENT
  Age: 40 Year
  Sex: Male
  Weight: 126.98 kg

DRUGS (3)
  1. NICOTINE POLACRILEX [Suspect]
     Active Substance: NICOTINE
     Indication: SMOKING CESSATION THERAPY
     Dosage: 4 MG, UNKNOWN
     Route: 002
     Dates: start: 20180606, end: 20180606
  2. VITAMINS NOS [Concomitant]
     Active Substance: VITAMINS
     Indication: SUPPLEMENTATION THERAPY
     Dosage: UNK
     Route: 048
  3. NICOTINE POLACRILEX [Suspect]
     Active Substance: NICOTINE
     Dosage: 4 MG, SINGLE
     Route: 002
     Dates: start: 20180612, end: 20180612

REACTIONS (3)
  - Burn oral cavity [Not Recovered/Not Resolved]
  - Oral discomfort [Recovered/Resolved]
  - Pre-existing disease [Not Recovered/Not Resolved]

NARRATIVE: CASE EVENT DATE: 201806
